FAERS Safety Report 11969991 (Version 1)
Quarter: 2016Q1

REPORT INFORMATION
  Report Type: Spontaneous
  Country: US (occurrence: US)
  Receive Date: 20160128
  Receipt Date: 20160128
  Transmission Date: 20160526
  Serious: Yes (Other)
  Sender: FDA-Public Use
  Company Number: PHEH2016US001835

PATIENT
  Age: 18 Year
  Sex: Female

DRUGS (7)
  1. MIRALAX [Concomitant]
     Active Substance: POLYETHYLENE GLYCOL 3350
     Indication: PRODUCT USED FOR UNKNOWN INDICATION
     Dosage: UNK OT, PRN
     Route: 065
  2. ZYKADIA [Suspect]
     Active Substance: CERITINIB
     Dosage: 300- 450 MG PER DAY
     Route: 065
     Dates: end: 201504
  3. KEPPRA [Concomitant]
     Active Substance: LEVETIRACETAM
     Indication: PRODUCT USED FOR UNKNOWN INDICATION
     Dosage: 500 MG, BID
     Route: 065
  4. CELECOXIB. [Concomitant]
     Active Substance: CELECOXIB
     Indication: PRODUCT USED FOR UNKNOWN INDICATION
     Dosage: 200 MG, BID
     Route: 065
  5. ZOFRAN [Concomitant]
     Active Substance: ONDANSETRON HYDROCHLORIDE
     Indication: PRODUCT USED FOR UNKNOWN INDICATION
     Dosage: UNK OT, PRN
     Route: 065
  6. ZYKADIA [Suspect]
     Active Substance: CERITINIB
     Indication: SARCOMA
     Dosage: 750 MG, QD
     Route: 065
     Dates: start: 201406
  7. FIORICET [Concomitant]
     Active Substance: ACETAMINOPHEN\BUTALBITAL\CAFFEINE
     Indication: HEADACHE
     Dosage: UNK OT, PRN
     Route: 065

REACTIONS (5)
  - Lung neoplasm [Unknown]
  - Product use issue [Unknown]
  - Malignant neoplasm progression [Unknown]
  - Liver function test increased [Unknown]
  - Sarcoma [Unknown]

NARRATIVE: CASE EVENT DATE: 201406
